FAERS Safety Report 8457950-9 (Version None)
Quarter: 2012Q2

REPORT INFORMATION
  Report Type: 
  Country: None (occurrence: None)
  Receive Date: 20120622
  Receipt Date: 20120615
  Transmission Date: 20120825
  Serious: Yes (Other)
  Sender: FDA-Public Use
  Company Number: BE-JNJFOC-20110502748

PATIENT
  Age: 60 Year
  Sex: Male

DRUGS (1)
  1. USTEKINUMAB [Suspect]
     Indication: PSORIASIS
     Route: 058

REACTIONS (1)
  - HERPES ZOSTER [None]
